FAERS Safety Report 6379713-0 (Version None)
Quarter: 2009Q3

REPORT INFORMATION
  Report Type: 
  Country: None (occurrence: None)
  Receive Date: 20090928
  Receipt Date: 20090916
  Transmission Date: 20100115
  Serious: Yes (Hospitalization, Other)
  Sender: FDA-Public Use
  Company Number: BR-AVENTIS-200920708GDDC

PATIENT
  Age: 70 Year
  Sex: Male
  Weight: 62.3 kg

DRUGS (14)
  1. LANTUS [Suspect]
     Route: 058
  2. AUTOPEN INSULIN INJECTION PEN [Suspect]
     Dates: end: 20090501
  3. PURAN T4 [Concomitant]
     Indication: HYPOTHYROIDISM
     Route: 048
  4. CARDILOL [Concomitant]
     Route: 048
  5. PANTOPRAZOLE SODIUM [Concomitant]
     Indication: GASTRIC DISORDER
     Route: 048
  6. VIT B COMPLEX [Concomitant]
     Route: 048
  7. NEOSEMID                           /00032601/ [Concomitant]
     Route: 048
  8. LEXAPRO [Concomitant]
     Indication: DEPRESSION
     Route: 048
  9. GABAPENTIN [Concomitant]
     Dosage: DOSE: 2 TABS EVERY 6 HOURS
     Route: 048
  10. SOMALGIN                           /00009201/ [Concomitant]
     Indication: THROMBOSIS PROPHYLAXIS
     Route: 048
  11. AFOPIC [Concomitant]
     Route: 048
  12. OSTRIOL [Concomitant]
     Dosage: DOSE: 2 TABS AFTER HEMODIALYSIS
     Route: 048
  13. SECOTEX [Concomitant]
     Route: 048
  14. NOVORAPID [Concomitant]
     Dosage: DOSE: ACCORDING TO GLYCEMIA
     Route: 058

REACTIONS (7)
  - CONDITION AGGRAVATED [None]
  - HYPERHIDROSIS [None]
  - HYPOGLYCAEMIA [None]
  - HYPOTENSION [None]
  - LAZINESS [None]
  - RENAL IMPAIRMENT [None]
  - RETCHING [None]
